FAERS Safety Report 4791235-7 (Version None)
Quarter: 2005Q4

REPORT INFORMATION
  Report Type: 
  Country: None (occurrence: None)
  Receive Date: 20051005
  Receipt Date: 20050919
  Transmission Date: 20060501
  Serious: Yes (Life-Threatening, Hospitalization, Other)
  Sender: FDA-Public Use
  Company Number: 12420

PATIENT
  Age: 60 Year
  Sex: Female
  Weight: 80 kg

DRUGS (7)
  1. METHOTREXATE [Suspect]
     Indication: RHEUMATOID ARTHRITIS
     Dosage: 15 MG WEEKLY PO
     Route: 048
     Dates: start: 20041102, end: 20050904
  2. ENBREL [Suspect]
     Indication: RHEUMATOID ARTHRITIS
     Dosage: 25 MG 2/WK ST
     Dates: start: 20040614, end: 20050904
  3. ASPIRIN [Concomitant]
  4. SPIRONOLACTONE [Concomitant]
  5. FRUSEMIDE [Concomitant]
  6. FOLIC ACID [Concomitant]
  7. ACETAMINOPHEN W/ CODEINE [Concomitant]

REACTIONS (1)
  - MENINGITIS LISTERIA [None]
